FAERS Safety Report 9753839 (Version 1)
Quarter: 2013Q4

REPORT INFORMATION
  Report Type: Spontaneous
  Country: US (occurrence: US)
  Receive Date: 20131213
  Receipt Date: 20131213
  Transmission Date: 20140711
  Serious: No
  Sender: FDA-Public Use
  Company Number: US-GILEAD-2010-0027743

PATIENT
  Age: 71 Year
  Sex: Female

DRUGS (8)
  1. LETAIRIS [Suspect]
     Indication: PULMONARY ARTERIAL HYPERTENSION
     Route: 048
     Dates: start: 20091029
  2. ADVAIR [Concomitant]
  3. SPIRIVA [Concomitant]
  4. LASIX [Concomitant]
  5. ALTACE [Concomitant]
  6. COUMADIN [Concomitant]
  7. LIPITOR [Concomitant]
  8. TOPROL XL [Concomitant]

REACTIONS (1)
  - Nasal congestion [Not Recovered/Not Resolved]
